FAERS Safety Report 4698635-4 (Version None)
Quarter: 2005Q2

REPORT INFORMATION
  Report Type: 
  Country: None (occurrence: None)
  Receive Date: 20050623
  Receipt Date: 20050303
  Transmission Date: 20051028
  Serious: Yes (Other)
  Sender: FDA-Public Use
  Company Number: NUBN20050006

PATIENT
  Sex: Male

DRUGS (1)
  1. NUBAIN [Suspect]
     Dosage: 10 AMPOU
     Dates: start: 20050201

REACTIONS (1)
  - DRUG ABUSER [None]
